FAERS Safety Report 8920115 (Version 1)
Quarter: 2012Q4

REPORT INFORMATION
  Report Type: 
  Country: US (occurrence: US)
  Receive Date: 20121122
  Receipt Date: 20121122
  Transmission Date: 20130627
  Serious: Yes (Hospitalization)
  Sender: FDA-Public Use
  Company Number: US-ROCHE-1158746

PATIENT
  Sex: Female

DRUGS (4)
  1. XELODA [Suspect]
     Indication: BREAST CANCER
     Route: 048
  2. TYKERB [Suspect]
     Indication: BREAST CANCER
     Route: 048
     Dates: start: 201202
  3. TYKERB [Suspect]
     Dosage: dose reduced
     Route: 048
  4. APAP/OXYCODONE [Concomitant]

REACTIONS (4)
  - Coma [Unknown]
  - Diarrhoea [Unknown]
  - Pain in extremity [Unknown]
  - Oedema peripheral [Unknown]
